FAERS Safety Report 17407540 (Version 1)
Quarter: 2020Q1

REPORT INFORMATION
  Report Type: Spontaneous
  Country: DE (occurrence: DE)
  Receive Date: 20200212
  Receipt Date: 20200212
  Transmission Date: 20200409
  Serious: Yes (Hospitalization)
  Sender: FDA-Public Use
  Company Number: DE-ASTRAZENECA-2020SE18392

PATIENT
  Sex: Female

DRUGS (2)
  1. SYMBICORT [Suspect]
     Active Substance: BUDESONIDE\FORMOTEROL FUMARATE DIHYDRATE
     Indication: BRONCHITIS
     Dosage: 160.0/4.5 UG, TWO TIMES A DAY (2-0-2)
     Route: 055
  2. SYMBICORT [Suspect]
     Active Substance: BUDESONIDE\FORMOTEROL FUMARATE DIHYDRATE
     Indication: ASTHMA
     Dosage: 160.0/4.5 UG, TWO TIMES A DAY (2-0-2)
     Route: 055

REACTIONS (4)
  - Off label use [Unknown]
  - Dysphonia [Unknown]
  - Cough [Unknown]
  - Drug ineffective for unapproved indication [Unknown]
